FAERS Safety Report 4310322-0 (Version None)
Quarter: 2004Q1

REPORT INFORMATION
  Report Type: 
  Country: None (occurrence: None)
  Receive Date: 20040302
  Receipt Date: 20040302
  Transmission Date: 20041129
  Serious: No
  Sender: FDA-Public Use
  Company Number: None

PATIENT
  Age: 40 Year
  Sex: Female

DRUGS (4)
  1. DIOVAN [Suspect]
     Indication: METABOLIC SYNDROME
     Dosage: DAILY
     Dates: start: 20030530, end: 20030830
  2. DARVOCET-N 100 [Concomitant]
  3. BUMETANIDE [Concomitant]
  4. SKELAXIN [Concomitant]

REACTIONS (4)
  - GINGIVAL DISORDER [None]
  - GINGIVAL RECESSION [None]
  - MYALGIA [None]
  - ONYCHOMADESIS [None]
